FAERS Safety Report 17855066 (Version 1)
Quarter: 2020Q2

REPORT INFORMATION
  Report Type: Spontaneous
  Country: US (occurrence: US)
  Receive Date: 20200602
  Receipt Date: 20200602
  Transmission Date: 20200714
  Serious: No
  Sender: FDA-Public Use
  Company Number: None

PATIENT
  Age: 75 Year
  Sex: Male
  Weight: 79 kg

DRUGS (8)
  1. ROCURONIUM [Suspect]
     Active Substance: ROCURONIUM BROMIDE
     Indication: ANAESTHESIA
     Route: 040
     Dates: start: 20200602, end: 20200602
  2. ROCURONIUM [Suspect]
     Active Substance: ROCURONIUM BROMIDE
     Indication: ANAESTHESIA
     Route: 040
     Dates: start: 20200602, end: 20200602
  3. ONDANSETRON 4MG [Concomitant]
     Active Substance: ONDANSETRON
     Dates: end: 20200602
  4. FENTANYL 250 MCG [Concomitant]
     Dates: start: 20200602, end: 20200602
  5. CEFAZOLIN ZG [Concomitant]
     Dates: start: 20200602, end: 20200602
  6. BUPIVACAINE 0.25% [Concomitant]
     Active Substance: BUPIVACAINE
     Dates: start: 20200602, end: 20200602
  7. PROPOFOL 200MG [Concomitant]
     Dates: end: 20200602
  8. SUCCINYLCHOLINE 200MG [Concomitant]
     Dates: start: 20200602, end: 20200602

REACTIONS (1)
  - Therapeutic product effect decreased [None]

NARRATIVE: CASE EVENT DATE: 20200601
